FAERS Safety Report 10898610 (Version 1)
Quarter: 2015Q1

REPORT INFORMATION
  Report Type: Report from Study
  Country: US (occurrence: US)
  Receive Date: 20150309
  Receipt Date: 20150309
  Transmission Date: 20150721
  Serious: No
  Sender: FDA-Public Use
  Company Number: US-ABBVIE-14P-163-1260511-00

PATIENT
  Age: 37 Year
  Sex: Female
  Weight: 47.22 kg

DRUGS (5)
  1. ALCOHOL. [Suspect]
     Active Substance: ALCOHOL
     Indication: PRODUCT USED FOR UNKNOWN INDICATION
  2. MOBIC [Concomitant]
     Active Substance: MELOXICAM
     Indication: INFLAMMATION
  3. MOBIC [Concomitant]
     Active Substance: MELOXICAM
     Indication: TEMPOROMANDIBULAR JOINT SYNDROME
  4. DIAZEPAM. [Concomitant]
     Active Substance: DIAZEPAM
     Indication: PRODUCT USED FOR UNKNOWN INDICATION
  5. LUPRON DEPOT [Suspect]
     Active Substance: LEUPROLIDE ACETATE
     Indication: ENDOMETRIOSIS
     Dates: start: 201404

REACTIONS (7)
  - Muscle spasms [Not Recovered/Not Resolved]
  - Hot flush [Recovering/Resolving]
  - Endometriosis [Not Recovered/Not Resolved]
  - Bruxism [Not Recovered/Not Resolved]
  - Temporomandibular joint syndrome [Not Recovered/Not Resolved]
  - Insomnia [Recovered/Resolved]
  - Headache [Recovered/Resolved]

NARRATIVE: CASE EVENT DATE: 201404
